FAERS Safety Report 5797405-3 (Version None)
Quarter: 2008Q2

REPORT INFORMATION
  Report Type: 
  Country: None (occurrence: None)
  Receive Date: 20080630
  Receipt Date: 20080620
  Transmission Date: 20081010
  Serious: Yes (Other)
  Sender: FDA-Public Use
  Company Number: 2008SP001437

PATIENT
  Age: 36 Year
  Sex: Female

DRUGS (7)
  1. LUNESTA [Suspect]
     Dosage: ; ORAL
     Route: 048
  2. VARENICLINE [Suspect]
     Indication: SMOKING CESSATION THERAPY
     Dates: start: 20080201, end: 20080101
  3. AMBIEN [Suspect]
     Dosage: ; ORAL
     Route: 048
  4. XANAX [Suspect]
     Dosage: ; ORAL
     Route: 048
  5. WELLBUTRIN [Concomitant]
  6. ALBUTEROL [Concomitant]
  7. NEXIUM [Concomitant]

REACTIONS (2)
  - INTENTIONAL OVERDOSE [None]
  - SUICIDE ATTEMPT [None]
